FAERS Safety Report 21233548 (Version 1)
Quarter: 2022Q3

REPORT INFORMATION
  Report Type: Spontaneous
  Country: US (occurrence: US)
  Receive Date: 20220819
  Receipt Date: 20220819
  Transmission Date: 20221027
  Serious: Yes (Hospitalization, Other)
  Sender: FDA-Public Use
  Company Number: US-TEVA-2022-US-2066210

PATIENT
  Age: 68 Year
  Sex: Female
  Weight: 88 kg

DRUGS (18)
  1. CARBOPLATIN [Suspect]
     Active Substance: CARBOPLATIN
     Indication: Endometrial adenocarcinoma
     Route: 065
     Dates: start: 201911
  2. PACLITAXEL [Suspect]
     Active Substance: PACLITAXEL
     Indication: Endometrial adenocarcinoma
     Route: 065
     Dates: start: 201911
  3. ASPIRIN [Concomitant]
     Active Substance: ASPIRIN
     Indication: Product used for unknown indication
     Dosage: 81 MILLIGRAM DAILY;
     Route: 048
  4. Tenorim [Concomitant]
     Indication: Product used for unknown indication
     Dosage: 25 MILLIGRAM DAILY;
     Route: 048
     Dates: start: 200912, end: 201908
  5. Tenorim [Concomitant]
     Dosage: 50 MILLIGRAM DAILY;
     Route: 048
  6. COENZYME Q10 [Concomitant]
     Active Substance: DIETARY SUPPLEMENT\UBIDECARENONE
     Indication: Product used for unknown indication
     Route: 048
  7. VITAMIN D3 [Concomitant]
     Active Substance: CHOLECALCIFEROL
     Indication: Product used for unknown indication
     Dosage: 1000 IU (INTERNATIONAL UNIT) DAILY;
     Route: 048
  8. Fish oil-omega 3-fatty acids [Concomitant]
     Indication: Product used for unknown indication
     Dosage: 1 DOSAGE FORMS DAILY; 340-1000MG
     Route: 048
  9. Glucosamine and Chondroit-MV and MIN3 [Concomitant]
     Indication: Product used for unknown indication
     Dosage: 1 DOSAGE FORMS DAILY;
     Route: 048
  10. IBUPROFEN [Concomitant]
     Active Substance: IBUPROFEN
     Indication: Pain
     Dosage: TABLET (600 MG TOTAL) BY MOUTH EVERY 6 HOURS AS NEEDED
     Route: 048
  11. IBUPROFEN [Concomitant]
     Active Substance: IBUPROFEN
     Indication: Muscle spasms
  12. MAGNESIUM [Concomitant]
     Active Substance: MAGNESIUM
     Indication: Product used for unknown indication
     Dosage: 27 MG (500 MG)
     Route: 048
  13. VITAMINS [Concomitant]
     Active Substance: VITAMINS
     Indication: Product used for unknown indication
     Route: 048
  14. CALCIUM [Concomitant]
     Active Substance: CALCIUM
     Indication: Product used for unknown indication
     Dosage: 1 DOSAGE FORMS DAILY;
     Route: 048
  15. DECADRON [Concomitant]
     Active Substance: DEXAMETHASONE
     Indication: Product used for unknown indication
     Dosage: 20 MG12 HOURS AND 6 HOURS BEFORE TAXOL LNFUSION/8 MG DAILY ON DAYS 2-4 OF EACH CHEMO CYCLE.
     Route: 048
  16. HYDROCHLOROTHIAZIDE [Concomitant]
     Active Substance: HYDROCHLOROTHIAZIDE
     Indication: Product used for unknown indication
     Dosage: 12.5 MILLIGRAM DAILY; EVERY MORNING
     Route: 048
  17. EMLA [Concomitant]
     Active Substance: LIDOCAINE\PRILOCAINE
     Indication: Product used for unknown indication
     Dosage: 2-2.5% CREAM 2.5 G TO AFFECTED AREA
     Route: 061
  18. ZYPREXA [Concomitant]
     Active Substance: OLANZAPINE
     Indication: Product used for unknown indication
     Dosage: 10 MG AS DIRECTED
     Route: 048

REACTIONS (20)
  - Urinary tract infection [Recovering/Resolving]
  - Neuropathy peripheral [Unknown]
  - Acute kidney injury [Unknown]
  - Unresponsive to stimuli [Unknown]
  - Fatigue [Unknown]
  - Cerebrovascular accident [Unknown]
  - Encephalopathy [Unknown]
  - Acute respiratory failure [Unknown]
  - Pancytopenia [Unknown]
  - Nausea [Unknown]
  - Anaemia [Unknown]
  - Hyponatraemia [Unknown]
  - Taste disorder [Unknown]
  - Dysuria [Unknown]
  - Haematuria [Unknown]
  - Dysphonia [Unknown]
  - Hypophagia [Recovering/Resolving]
  - Fluid intake reduced [Unknown]
  - Lethargy [Unknown]
  - Confusional state [Unknown]

NARRATIVE: CASE EVENT DATE: 20190101
